FAERS Safety Report 19794938 (Version 3)
Quarter: 2021Q4

REPORT INFORMATION
  Report Type: Spontaneous
  Country: PT (occurrence: PT)
  Receive Date: 20210907
  Receipt Date: 20211021
  Transmission Date: 20220303
  Serious: Yes (Disabling, Other)
  Sender: FDA-Public Use
  Company Number: PT-SA-SAC20210820000288

PATIENT
  Sex: Female

DRUGS (2)
  1. MYOZYME [Suspect]
     Active Substance: ALGLUCOSIDASE ALFA
     Indication: Glycogen storage disease type II
     Dosage: UNK UNK, Q15D
     Dates: start: 2011
  2. DEXAMETHASONE [Suspect]
     Active Substance: DEXAMETHASONE
     Dosage: UNK

REACTIONS (10)
  - Loss of personal independence in daily activities [Unknown]
  - Housebound [Unknown]
  - Hypoxia [Unknown]
  - Lymphoma [Unknown]
  - Pain [Unknown]
  - Muscular weakness [Unknown]
  - Abdominal pain [Unknown]
  - Abdominal distension [Unknown]
  - Heart rate abnormal [Unknown]
  - Chest pain [Unknown]

NARRATIVE: CASE EVENT DATE: 20170101
